FAERS Safety Report 6192130-1 (Version None)
Quarter: 2009Q2

REPORT INFORMATION
  Report Type: 
  Country: None (occurrence: None)
  Receive Date: 20090515
  Receipt Date: 20090513
  Transmission Date: 20091009
  Serious: Yes (Hospitalization)
  Sender: FDA-Public Use
  Company Number: US-BRISTOL-MYERS SQUIBB COMPANY-14617971

PATIENT
  Age: 64 Year
  Sex: Female

DRUGS (15)
  1. KENALOG [Suspect]
     Indication: BACK PAIN
     Route: 008
     Dates: start: 20090508
  2. LIDOCAINE [Suspect]
     Dosage: 1 DOSAGE FORM = 170(UNIT NOT SPECIFIED)
     Dates: start: 20090508
  3. MARCAINE [Suspect]
     Dosage: 1 DOSAGE FORM = 0.25(UNIT NOT SPECIFIED)
     Dates: start: 20090508
  4. OMNIPAQUE 140 [Suspect]
     Dosage: 1 DOSAGE FORM = 180(UNIT NOT SPECIFIED)
     Dates: start: 20090508
  5. TIMOLOL MALEATE [Concomitant]
     Dosage: 1 DOSAGE FORM=0.5(UNIT NOT SPECIFIED); LAST DOSE ON 28APR09
  6. XALATAN [Concomitant]
     Dosage: 1 DOSAGE FORM=005(UNIT NOT SPECIFIED); LAST DOSE ON 23APR09
  7. AMITRIPTLINE HYDROCHLORIDE TAB [Concomitant]
     Dosage: LAST DOSE ON 23APR09
  8. GLIMEPIRIDE [Concomitant]
     Dosage: 1DF=4MG [1/2 2 TIMES/DAY];LAST DOSE ON 24APR09
  9. ACTOPLUS MET [Concomitant]
     Dosage: 1 DOSAGE FORM=15/850;LAST DOSE ON 24APR09
  10. GABAPENTIN [Concomitant]
     Dosage: 1DF=600MG[1/2 2TIMES/DAY] LAST DOSE ON 24APR09
  11. FUROSEMIDE [Concomitant]
     Dosage: LAST DOSE ON 24APR09
  12. ENALAPRIL MALEATE [Concomitant]
     Dosage: LAST DOSE ON 24APR09
  13. CENTRUM SILVER [Concomitant]
     Dosage: 1 DF=1.5 A DAY; LAST DOSE: 23APR09;CHEWABLES
  14. ASPIRIN [Concomitant]
     Dosage: HAVE NOT TAKEN FOR 2 WEEKS
  15. CALCIUM [Concomitant]
     Dosage: BARIATRIC CALCIUM, LAST DOSE ON 23-APR-09

REACTIONS (2)
  - BLOOD PRESSURE DECREASED [None]
  - MYOCARDIAL INFARCTION [None]
